FAERS Safety Report 9773286 (Version 3)
Quarter: 2014Q1

REPORT INFORMATION
  Report Type: Spontaneous
  Country: JP (occurrence: JP)
  Receive Date: 20131219
  Receipt Date: 20140311
  Transmission Date: 20141002
  Serious: Yes (Other)
  Sender: FDA-Public Use
  Company Number: JP-GLAXOSMITHKLINE-B0954374A

PATIENT
  Age: 78 Year
  Sex: Female

DRUGS (7)
  1. LAMICTAL [Suspect]
     Indication: CONVULSION PROPHYLAXIS
     Dosage: 50MG PER DAY
     Route: 048
     Dates: start: 20131125
  2. LAMICTAL [Suspect]
     Indication: CONVULSION
     Dosage: 50MG TWICE PER DAY
     Route: 048
     Dates: start: 20131209, end: 20131216
  3. FAMOTIDINE [Suspect]
     Indication: HEPATIC CIRRHOSIS
     Dosage: 20MG PER DAY
     Route: 048
  4. ARICEPT [Concomitant]
     Indication: DEMENTIA
     Dosage: 5MG PER DAY
     Route: 048
  5. PERORIC [Concomitant]
     Indication: DEMENTIA
     Dosage: 10MG PER DAY
     Route: 048
  6. BROTIZOLAM [Concomitant]
     Indication: INSOMNIA
     Dosage: .25MG PER DAY
     Route: 048
  7. URSO [Concomitant]
     Indication: HEPATIC CIRRHOSIS
     Route: 048

REACTIONS (5)
  - Neutropenia [Recovering/Resolving]
  - Granulocytopenia [Recovered/Resolved]
  - Rash [Recovered/Resolved]
  - Rash [Recovered/Resolved]
  - Drug eruption [Recovered/Resolved]
